FAERS Safety Report 24031129 (Version 1)
Quarter: 2024Q2

REPORT INFORMATION
  Report Type: Spontaneous
  Country: US (occurrence: US)
  Receive Date: 20240628
  Receipt Date: 20240628
  Transmission Date: 20240715
  Serious: No
  Sender: FDA-Public Use
  Company Number: US-ABBVIE-5818018

PATIENT
  Sex: Male

DRUGS (1)
  1. RESTASIS [Suspect]
     Active Substance: CYCLOSPORINE
     Indication: Dry eye
     Dosage: TIME INTERVAL: 0.33333333 DAYS
     Route: 047

REACTIONS (5)
  - Inappropriate schedule of product administration [Unknown]
  - Dry eye [Unknown]
  - Vision blurred [Unknown]
  - Eye pain [Unknown]
  - Drug ineffective [Unknown]
